FAERS Safety Report 14698936 (Version 2)
Quarter: 2022Q3

REPORT INFORMATION
  Report Type: Report from Study
  Country: US (occurrence: None)
  Receive Date: 20180330
  Receipt Date: 20220826
  Transmission Date: 20221027
  Serious: Yes (Hospitalization)
  Sender: FDA-Public Use
  Company Number: US-ROCHE-2093023

PATIENT
  Age: 54 Year
  Sex: Male
  Weight: 70.9 kg

DRUGS (14)
  1. COBIMETINIB [Suspect]
     Active Substance: COBIMETINIB
     Indication: Erdheim-Chester disease
     Route: 048
     Dates: start: 20170221, end: 20180316
  2. IMODIUM [Concomitant]
     Active Substance: LOPERAMIDE HYDROCHLORIDE
  3. BIOTIN [Concomitant]
     Active Substance: BIOTIN
  4. ACETAMINOPHEN [Concomitant]
     Active Substance: ACETAMINOPHEN
     Dosage: 2 TABLETS
  5. CITALOPRAM [Concomitant]
     Active Substance: CITALOPRAM HYDROBROMIDE
  6. LEVOTHYROXINE [Concomitant]
     Active Substance: LEVOTHYROXINE
  7. OXYCODONE [Concomitant]
     Active Substance: OXYCODONE
     Dosage: 5 MG - 300 MG
  8. IBUPROFEN [Concomitant]
     Active Substance: IBUPROFEN
  9. DESMOPRESSIN [Concomitant]
     Active Substance: DESMOPRESSIN
  10. TESTOSTERONE [Concomitant]
     Active Substance: TESTOSTERONE
     Dosage: 25 MG /2.5 G
  11. HYDROCORTISONE [Concomitant]
     Active Substance: HYDROCORTISONE
  12. ALENDRONATE [Concomitant]
     Active Substance: ALENDRONATE SODIUM
  13. LORAZEPAM [Concomitant]
     Active Substance: LORAZEPAM
  14. THIAMINE [Concomitant]
     Active Substance: THIAMINE

REACTIONS (4)
  - Electrolyte imbalance [Unknown]
  - Urine output decreased [Unknown]
  - Fatigue [Unknown]
  - Hypernatraemia [Unknown]

NARRATIVE: CASE EVENT DATE: 20180315
